FAERS Safety Report 23814842 (Version 2)
Quarter: 2024Q2

REPORT INFORMATION
  Report Type: Spontaneous
  Country: CN (occurrence: CN)
  Receive Date: 20240503
  Receipt Date: 20240506
  Transmission Date: 20240716
  Serious: Yes (Hospitalization, Other)
  Sender: FDA-Public Use
  Company Number: CN-BAYER-2024A061592

PATIENT
  Age: 59 Year
  Sex: Female
  Weight: 64.5 kg

DRUGS (1)
  1. STIVARGA [Suspect]
     Active Substance: REGORAFENIB\REGORAFENIB MONOHYDRATE
     Indication: Hepatocellular carcinoma
     Dosage: 160 MG, QD, ORALLY FOR THE FIRST 21 DAYS OF EACH COURSE OF TREATMENT, AND 28 DAYS FOR A COURSE OF TR
     Route: 048
     Dates: start: 20231121, end: 20240110

REACTIONS (5)
  - Palmar-plantar erythrodysaesthesia syndrome [Recovering/Resolving]
  - Stomatitis [Recovering/Resolving]
  - Metastases to liver [None]
  - Pain of skin [Recovering/Resolving]
  - Feeding disorder [Recovering/Resolving]

NARRATIVE: CASE EVENT DATE: 20240401
